FAERS Safety Report 8998268 (Version 1)
Quarter: 2013Q1

REPORT INFORMATION
  Report Type: Spontaneous
  Country: FI (occurrence: FI)
  Receive Date: 20130104
  Receipt Date: 20130104
  Transmission Date: 20140127
  Serious: Yes (Hospitalization)
  Sender: FDA-Public Use
  Company Number: FI-SANOFI-AVENTIS-2012SA086294

PATIENT
  Age: 36 Year
  Sex: Female

DRUGS (3)
  1. KLEXANE [Suspect]
     Indication: THROMBOSIS
     Dosage: 1 DOSE TWICE A DAY
     Route: 058
     Dates: start: 20121108
  2. PARACETAMOL [Concomitant]
     Route: 048
  3. WARFARIN SODIUM [Concomitant]
     Route: 048

REACTIONS (9)
  - Abdominal pain upper [Recovered/Resolved]
  - Nausea [Recovered/Resolved]
  - Abdominal pain [Recovering/Resolving]
  - Injection site bruising [Recovering/Resolving]
  - Injection site pain [Recovering/Resolving]
  - Injection site mass [Recovering/Resolving]
  - Incorrect route of drug administration [Unknown]
  - C-reactive protein increased [Recovered/Resolved]
  - Body temperature increased [Unknown]
